FAERS Safety Report 9862468 (Version 1)
Quarter: 2014Q1

REPORT INFORMATION
  Report Type: Spontaneous
  Country: DE (occurrence: DE)
  Receive Date: 20140203
  Receipt Date: 20140203
  Transmission Date: 20141002
  Serious: Yes (Other)
  Sender: FDA-Public Use
  Company Number: 2014SP000274

PATIENT
  Age: 45 Year
  Sex: Female

DRUGS (5)
  1. ZEBINIX (ESLICARBAZEPINE ACETATE) [Suspect]
     Indication: EPILEPSY
     Route: 048
  2. ZEBINIX (ESLICARBAZEPINE ACETATE) [Suspect]
     Indication: EPILEPSY
     Route: 048
  3. ZEBINIX (ESLICARBAZEPINE ACETATE) [Suspect]
     Indication: EPILEPSY
     Route: 048
     Dates: start: 20130929
  4. LEVETIRACETAM [Concomitant]
  5. ZONEGRAN [Concomitant]

REACTIONS (2)
  - Overdose [Unknown]
  - Hyponatraemia [Unknown]
